FAERS Safety Report 13053142 (Version 1)
Quarter: 2016Q4

REPORT INFORMATION
  Report Type: Spontaneous
  Country: US (occurrence: US)
  Receive Date: 20161221
  Receipt Date: 20161221
  Transmission Date: 20170207
  Serious: Yes (Hospitalization)
  Sender: FDA-Public Use
  Company Number: US-BIOVITRUM-2016US0020

PATIENT
  Age: 16 Year
  Sex: Male
  Weight: 101 kg

DRUGS (4)
  1. ANAKINRA [Suspect]
     Active Substance: ANAKINRA
     Route: 058
  2. NAPROXEN. [Concomitant]
     Active Substance: NAPROXEN
     Indication: STILL^S DISEASE ADULT ONSET
  3. ANAKINRA [Suspect]
     Active Substance: ANAKINRA
     Indication: STILL^S DISEASE ADULT ONSET
     Dosage: 100MG TWICE DAILY, CHANGED TO ONCE- DAILY DOSING AFTER 5 DAYS. TREATMENT HELD 8 DAYS AFTER INITIATIO
     Route: 058
  4. METHYLPREDNISOLONE. [Concomitant]
     Active Substance: METHYLPREDNISOLONE
     Indication: STILL^S DISEASE ADULT ONSET
     Route: 042

REACTIONS (2)
  - Hepatitis acute [Recovered/Resolved]
  - Drug-induced liver injury [Recovered/Resolved]
